FAERS Safety Report 12001370 (Version 3)
Quarter: 2020Q2

REPORT INFORMATION
  Report Type: Spontaneous
  Country: US (occurrence: US)
  Receive Date: 20160204
  Receipt Date: 20200427
  Transmission Date: 20200713
  Serious: Yes (Death, Other)
  Sender: FDA-Public Use
  Company Number: US-009507513-1602USA002132

PATIENT
  Sex: Male
  Weight: 129.71 kg

DRUGS (1)
  1. JANUMET [Suspect]
     Active Substance: METFORMIN HYDROCHLORIDE\SITAGLIPTIN PHOSPHATE
     Dosage: 50MG-500MG, TWICE DAILY
     Route: 048
     Dates: start: 20100108, end: 201310

REACTIONS (8)
  - Umbilical hernia [Unknown]
  - Metastases to liver [Unknown]
  - Pancytopenia [Unknown]
  - Emotional disorder [Unknown]
  - Pancreatic carcinoma metastatic [Fatal]
  - Pulmonary embolism [Unknown]
  - Anaemia of malignant disease [Unknown]
  - Mental disorder [Unknown]

NARRATIVE: CASE EVENT DATE: 201311
